FAERS Safety Report 11459106 (Version 1)
Quarter: 2015Q3

REPORT INFORMATION
  Report Type: Spontaneous
  Country: US (occurrence: US)
  Receive Date: 20150904
  Receipt Date: 20150904
  Transmission Date: 20151125
  Serious: No
  Sender: FDA-Public Use
  Company Number: US-PFIZER INC-2015288018

PATIENT
  Sex: Male

DRUGS (3)
  1. IBUPROFEN. [Suspect]
     Active Substance: IBUPROFEN
     Dosage: UNKOWN
  2. ASPIRIN EC [Suspect]
     Active Substance: ASPIRIN
     Dosage: UNKNOWN
  3. ALEVE [Suspect]
     Active Substance: NAPROXEN SODIUM
     Dosage: UNKNOWN

REACTIONS (1)
  - Drug hypersensitivity [Not Recovered/Not Resolved]
